FAERS Safety Report 5007751-9 (Version None)
Quarter: 2006Q2

REPORT INFORMATION
  Report Type: 
  Country: None (occurrence: None)
  Receive Date: 20060517
  Receipt Date: 20060504
  Transmission Date: 20061013
  Serious: Yes (Other)
  Sender: FDA-Public Use
  Company Number: 2006060971

PATIENT
  Age: 64 Year
  Sex: Male

DRUGS (3)
  1. PREDNISOLONE [Suspect]
     Indication: ILL-DEFINED DISORDER
     Dosage: 5 MG (5 MG, 1 IN 1 D)
  2. CYCLOSPORINE [Suspect]
     Indication: RENAL TRANSPLANT
     Dosage: 350 MG (175 MG, 2 IN 1 D)
  3. AZATHIOPRINE [Suspect]
     Indication: ILL-DEFINED DISORDER
     Dosage: 100 MG 9100 MG, 1 IN 1 D)

REACTIONS (3)
  - MOLLUSCUM CONTAGIOSUM [None]
  - NEPHROPATHY TOXIC [None]
  - SCAR [None]
